FAERS Safety Report 6637189-X (Version None)
Quarter: 2010Q1

REPORT INFORMATION
  Report Type: 
  Country: None (occurrence: None)
  Receive Date: 20100310
  Receipt Date: 20100301
  Transmission Date: 20100710
  Serious: Yes (Disabling, Other)
  Sender: FDA-Public Use
  Company Number: 8053855

PATIENT
  Sex: Female
  Weight: 68 kg

DRUGS (2)
  1. KEPPRA [Suspect]
     Indication: EPILEPSY
     Dosage: 500 MG BID ORAL, 500 MG BID ORAL
     Route: 048
     Dates: start: 20070101
  2. KEPPRA [Suspect]
     Indication: EPILEPSY
     Dosage: 500 MG BID ORAL, 500 MG BID ORAL
     Route: 048
     Dates: start: 20071101

REACTIONS (2)
  - DEAFNESS [None]
  - TINNITUS [None]
